FAERS Safety Report 25852519 (Version 1)
Quarter: 2025Q3

REPORT INFORMATION
  Report Type: Spontaneous
  Country: AU (occurrence: AU)
  Receive Date: 20250926
  Receipt Date: 20250926
  Transmission Date: 20251021
  Serious: Yes (Hospitalization)
  Sender: SANDOZ
  Company Number: AU-TGA-0000847434

PATIENT
  Age: 74 Year
  Sex: Female

DRUGS (1)
  1. IRBESARTAN [Suspect]
     Active Substance: IRBESARTAN
     Indication: Product used for unknown indication
     Route: 065

REACTIONS (4)
  - Swollen tongue [Recovered/Resolved]
  - Swelling [Recovered/Resolved]
  - Chest pain [Recovered/Resolved]
  - Dyspnoea [Recovered/Resolved]

NARRATIVE: CASE EVENT DATE: 20250507
